FAERS Safety Report 9685092 (Version 1)
Quarter: 2013Q4

REPORT INFORMATION
  Report Type: Spontaneous
  Country: DE (occurrence: DE)
  Receive Date: 20131113
  Receipt Date: 20131113
  Transmission Date: 20140711
  Serious: Yes (Death)
  Sender: FDA-Public Use
  Company Number: DE-RANBAXY-2013RR-75163

PATIENT
  Age: 86 Year
  Sex: Female
  Weight: 72 kg

DRUGS (2)
  1. METFORMIN [Suspect]
     Indication: DIABETES MELLITUS
     Dosage: 1000 MG, QD
     Route: 048
     Dates: end: 20131019
  2. CA/MA/D3 [Concomitant]
     Indication: OSTEOPOROSIS
     Dosage: 1 X 1
     Route: 048
     Dates: end: 20131019

REACTIONS (2)
  - Lactic acidosis [Fatal]
  - Renal failure acute [Fatal]
